FAERS Safety Report 7731910-5 (Version None)
Quarter: 2011Q3

REPORT INFORMATION
  Report Type: 
  Country: None (occurrence: None)
  Receive Date: 20110906
  Receipt Date: 20110822
  Transmission Date: 20111222
  Serious: Yes (Death, Other)
  Sender: FDA-Public Use
  Company Number: JP-WATSON-2011-13692

PATIENT
  Age: 5 Year
  Sex: Male

DRUGS (9)
  1. CYCLOPHOSPHAMIDE [Suspect]
     Indication: BURKITT'S LYMPHOMA
     Dosage: 9 G/M2 TOTAL DOSE
  2. ALLOPURINOL [Suspect]
     Indication: PRODUCT USED FOR UNKNOWN INDICATION
     Dosage: UNK
  3. SULFAMETHOXAZOLE AND TRIMETHOPRIM [Suspect]
     Indication: PRODUCT USED FOR UNKNOWN INDICATION
     Dosage: UNK
  4. VINCRISTINE [Suspect]
     Indication: BURKITT'S LYMPHOMA
     Dosage: 3 G/M2 TOTAL DOSE
  5. METHOTREXATE [Suspect]
     Indication: BURKITT'S LYMPHOMA
     Dosage: 6 G/M2 TOTAL DOSE
  6. ETOPOSIDE [Suspect]
     Indication: BURKITT'S LYMPHOMA
     Dosage: 1.1 G/M2 TOTAL DOSE
  7. EPIRUBICIN [Suspect]
     Indication: BURKITT'S LYMPHOMA
     Dosage: 360 MG/M2 TOTAL DOSE
  8. PREDNISOLONE [Suspect]
     Indication: BURKITT'S LYMPHOMA
     Dosage: UNK
  9. CYTARABINE [Suspect]
     Indication: BURKITT'S LYMPHOMA
     Dosage: 26 G/M2 TOTAL DOSE

REACTIONS (2)
  - PULMONARY VENO-OCCLUSIVE DISEASE [None]
  - TOXIC EPIDERMAL NECROLYSIS [None]
